FAERS Safety Report 7217126-X (Version None)
Quarter: 2011Q1

REPORT INFORMATION
  Report Type: 
  Country: None (occurrence: None)
  Receive Date: 20110110
  Receipt Date: 20110104
  Transmission Date: 20110831
  Serious: Yes (Other)
  Sender: FDA-Public Use
  Company Number: US-JNJFOC-20101206703

PATIENT
  Sex: Male
  Weight: 108.86 kg

DRUGS (3)
  1. HALDOL [Suspect]
     Indication: ILL-DEFINED DISORDER
     Route: 030
  2. RISPERDAL CONSTA [Suspect]
     Indication: ILL-DEFINED DISORDER
     Route: 030
  3. RISPERIDONE [Suspect]
     Indication: DEREALISATION
     Route: 048

REACTIONS (8)
  - GINGIVAL RECESSION [None]
  - ABNORMAL LOSS OF WEIGHT [None]
  - RESPIRATORY TRACT IRRITATION [None]
  - TOOTH ABSCESS [None]
  - CONSTIPATION [None]
  - SINUS DISORDER [None]
  - OROPHARYNGEAL PAIN [None]
  - DIABETES MELLITUS [None]
